FAERS Safety Report 5346476-7 (Version None)
Quarter: 2007Q2

REPORT INFORMATION
  Report Type: 
  Country: None (occurrence: None)
  Receive Date: 20070426
  Receipt Date: 20060530
  Transmission Date: 20071010
  Serious: Yes (Other)
  Sender: FDA-Public Use
  Company Number: US-JNJFOC-20060500786

PATIENT
  Age: 21 Year
  Sex: Male
  Weight: 70.3075 kg

DRUGS (2)
  1. ULTRAM [Suspect]
     Indication: ARTHRALGIA
     Dosage: 50 MG, 1 IN 1 AS NECESSARY, ORAL
     Route: 048
     Dates: start: 20060403, end: 20060422
  2. XANAX [Concomitant]

REACTIONS (1)
  - CONVULSION [None]
